FAERS Safety Report 6636468-X (Version None)
Quarter: 2010Q1

REPORT INFORMATION
  Report Type: 
  Country: None (occurrence: None)
  Receive Date: 20100311
  Receipt Date: 20061106
  Transmission Date: 20100710
  Serious: Yes (Other)
  Sender: FDA-Public Use
  Company Number: 2009-2752

PATIENT
  Age: 70 Year
  Sex: Male
  Weight: 89.8 kg

DRUGS (10)
  1. APOKYN [Suspect]
     Indication: PARKINSON'S DISEASE
     Dosage: (0.2 ML), SUBCUTANEOUS, (0.1 ML), SUBCUTANEOUS
     Route: 058
     Dates: start: 20050101, end: 20060101
  2. APOKYN [Suspect]
     Indication: PARKINSON'S DISEASE
     Dosage: (0.2 ML), SUBCUTANEOUS, (0.1 ML), SUBCUTANEOUS
     Route: 058
     Dates: start: 20060101
  3. SINEMET (SINEMET) (CARBIDOPA, LEVODOPA) [Concomitant]
  4. PERMAX (PERGOLIDE MESLATE) (PERGOLIDE MESILATE) [Concomitant]
  5. TEGRETOL [Concomitant]
  6. DETROPAN (OXYBUTYNIN) (OXYBUTYNIN) [Concomitant]
  7. IRON (IRON) (IRON) [Concomitant]
  8. NAMENDA (MEMANTINE HYDROCHLORIDE) (MEMANTINE HYDROCHOLORIDE) [Concomitant]
  9. PLAVIX (CLOPIDOGREL SULFATE) (CLOPIDOGREL) [Concomitant]
  10. ASPIRIN [Concomitant]

REACTIONS (3)
  - CEREBROVASCULAR ACCIDENT [None]
  - DRUG EFFECT DECREASED [None]
  - SOMNOLENCE [None]
